FAERS Safety Report 15361800 (Version 1)
Quarter: 2018Q3

REPORT INFORMATION
  Report Type: Spontaneous
  Country: CH (occurrence: CH)
  Receive Date: 20180907
  Receipt Date: 20180907
  Transmission Date: 20181010
  Serious: Yes (Other)
  Sender: FDA-Public Use
  Company Number: CH-REGENERON PHARMACEUTICALS, INC.-2018-36130

PATIENT

DRUGS (1)
  1. EYLEA [Suspect]
     Active Substance: AFLIBERCEPT
     Indication: NEOVASCULAR AGE-RELATED MACULAR DEGENERATION
     Dosage: INJECTION INTO UNKNOWN EYE; UNKNOWN DOSE, FREQUENCY AND TOTAL NUMBER OF DOSES
     Route: 031

REACTIONS (4)
  - Skin discolouration [Recovered/Resolved]
  - Herpes zoster [Recovered/Resolved]
  - Injection site swelling [Recovered/Resolved]
  - Swelling face [Recovered/Resolved]
